FAERS Safety Report 6138089-4 (Version None)
Quarter: 2009Q1

REPORT INFORMATION
  Report Type: 
  Country: None (occurrence: None)
  Receive Date: 20090331
  Receipt Date: 20090325
  Transmission Date: 20090719
  Serious: Yes (Death, Other)
  Sender: FDA-Public Use
  Company Number: ES-AVENTIS-200911527EU

PATIENT
  Age: 75 Year
  Sex: Female

DRUGS (5)
  1. CLEXANE [Suspect]
     Route: 058
     Dates: start: 20090126, end: 20090129
  2. PAROXETINE NOS [Concomitant]
     Route: 048
     Dates: start: 20090126
  3. BOI K [Concomitant]
     Dates: start: 20090126, end: 20090127
  4. DISTRANEURINE                      /00027502/ [Concomitant]
     Dates: start: 20090126, end: 20090127
  5. LEVOTHROID [Concomitant]
     Route: 048
     Dates: start: 20090126, end: 20090127

REACTIONS (3)
  - DEATH [None]
  - HAEMORRHAGE [None]
  - THROMBOCYTOPENIA [None]
